FAERS Safety Report 18677468 (Version 3)
Quarter: 2021Q1

REPORT INFORMATION
  Report Type: Report from Study
  Country: CA (occurrence: CA)
  Receive Date: 20201229
  Receipt Date: 20210209
  Transmission Date: 20210419
  Serious: Yes (Hospitalization, Other)
  Sender: FDA-Public Use
  Company Number: CA-GLAXOSMITHKLINE-CA2020AMR253511

PATIENT
  Age: 91 Year
  Sex: Female

DRUGS (1)
  1. MEPOLIZUMAB [Suspect]
     Active Substance: MEPOLIZUMAB
     Indication: ASTHMA
     Dosage: 100 MG, Z,MONTHLY
     Route: 042
     Dates: start: 20200902

REACTIONS (5)
  - SARS-CoV-2 test positive [Unknown]
  - Dyspnoea [Unknown]
  - Exophthalmos [Unknown]
  - Cough [Unknown]
  - Cellulitis [Unknown]

NARRATIVE: CASE EVENT DATE: 20201220
